FAERS Safety Report 18269620 (Version 3)
Quarter: 2020Q4

REPORT INFORMATION
  Report Type: Spontaneous
  Country: ES (occurrence: ES)
  Receive Date: 20200915
  Receipt Date: 20201002
  Transmission Date: 20210113
  Serious: Yes (Death, Hospitalization, Other)
  Sender: FDA-Public Use
  Company Number: ES-MYLANLABS-2020M1077772

PATIENT
  Age: 79 Year
  Sex: Male

DRUGS (13)
  1. DIGOXIN. [Suspect]
     Active Substance: DIGOXIN
     Indication: ATRIAL FIBRILLATION
  2. FUROSEMIDE. [Suspect]
     Active Substance: FUROSEMIDE
     Indication: CARDIAC FAILURE
  3. ALBUTEROL SULFATE. [Suspect]
     Active Substance: ALBUTEROL SULFATE
     Indication: CHRONIC OBSTRUCTIVE PULMONARY DISEASE
     Dosage: UNK
  4. POTASSIUM [Suspect]
     Active Substance: POTASSIUM
     Indication: CARDIAC FAILURE
     Dosage: UNK
  5. FUROSEMIDE. [Suspect]
     Active Substance: FUROSEMIDE
     Indication: ATRIAL FIBRILLATION
     Dosage: UNK
  6. THEOPHYLLINE [Suspect]
     Active Substance: THEOPHYLLINE ANHYDROUS
     Indication: CHRONIC OBSTRUCTIVE PULMONARY DISEASE
     Dosage: 400 MILLIGRAM, QD
  7. DIGOXIN. [Suspect]
     Active Substance: DIGOXIN
     Indication: CARDIAC FAILURE
     Dosage: UNK
  8. SALBUTAMOL [Suspect]
     Active Substance: ALBUTEROL
     Indication: CHRONIC OBSTRUCTIVE PULMONARY DISEASE
     Dosage: UNK
     Route: 065
  9. POTASSIUM [Suspect]
     Active Substance: POTASSIUM
     Indication: ATRIAL FIBRILLATION
  10. MOXIFLOXACIN. [Suspect]
     Active Substance: MOXIFLOXACIN
     Dosage: UNK
  11. MOXIFLOXACIN. [Suspect]
     Active Substance: MOXIFLOXACIN
     Indication: RESPIRATORY TRACT INFECTION
     Dosage: 400 MILLIGRAM, QD
     Route: 048
  12. OMEPRAZOLE. [Suspect]
     Active Substance: OMEPRAZOLE
     Indication: DYSPEPSIA
     Dosage: UNK
  13. WARFARIN SODIUM. [Suspect]
     Active Substance: WARFARIN SODIUM
     Indication: CHRONIC OBSTRUCTIVE PULMONARY DISEASE
     Dosage: UNK

REACTIONS (6)
  - Drug ineffective [Fatal]
  - Status epilepticus [Unknown]
  - Multiple organ dysfunction syndrome [Fatal]
  - Respiratory failure [Fatal]
  - Respiratory tract infection [Unknown]
  - Concomitant disease progression [Fatal]
